FAERS Safety Report 16042178 (Version 1)
Quarter: 2019Q1

REPORT INFORMATION
  Report Type: Spontaneous
  Country: GB (occurrence: GB)
  Receive Date: 20190306
  Receipt Date: 20190306
  Transmission Date: 20190418
  Serious: Yes (Other)
  Sender: FDA-Public Use
  Company Number: GB-DRREDDYS-GER/UKI/19/0108136

PATIENT
  Age: 37 Year
  Sex: Male
  Weight: 73.02 kg

DRUGS (1)
  1. SUMATRIPTAN. [Suspect]
     Active Substance: SUMATRIPTAN
     Indication: MIGRAINE
     Route: 048

REACTIONS (2)
  - Alcohol interaction [Unknown]
  - Vomiting [Recovered/Resolved]
